FAERS Safety Report 4650406-0 (Version None)
Quarter: 2005Q2

REPORT INFORMATION
  Report Type: 
  Country: None (occurrence: None)
  Receive Date: 20050429
  Receipt Date: 20041001
  Transmission Date: 20051028
  Serious: Yes (Life-Threatening, Hospitalization)
  Sender: FDA-Public Use
  Company Number: 8951

PATIENT
  Age: 63 Year
  Sex: Male

DRUGS (4)
  1. BLEOMYCIN [Suspect]
     Indication: HODGKIN'S DISEASE
     Dosage: IV
     Route: 042
     Dates: start: 20040501, end: 20040701
  2. DOXORUBICIN HYDROCHLORIDE [Concomitant]
  3. VINCRISTINE [Concomitant]
  4. DOXORUBICIN HCL [Concomitant]

REACTIONS (2)
  - ALVEOLITIS [None]
  - LUNG INJURY [None]
